FAERS Safety Report 21044123 (Version 1)
Quarter: 2022Q3

REPORT INFORMATION
  Report Type: Spontaneous
  Country: US (occurrence: None)
  Receive Date: 20220701
  Receipt Date: 20220701
  Transmission Date: 20221026
  Serious: Yes (Life-Threatening, Hospitalization, Disabling)
  Sender: FDA-Public Use
  Company Number: None

PATIENT
  Age: 24 Year
  Sex: Female
  Weight: 61.23 kg

DRUGS (3)
  1. RISPERIDONE [Suspect]
     Active Substance: RISPERIDONE
     Indication: Schizophrenia
     Dates: start: 20190309
  2. BENZTROPINE MESYLATE [Suspect]
     Active Substance: BENZTROPINE MESYLATE
  3. PROPRANOLOL [Suspect]
     Active Substance: PROPRANOLOL HYDROCHLORIDE

REACTIONS (9)
  - Rash [None]
  - Pruritus [None]
  - Swelling face [None]
  - Dizziness [None]
  - Dyspnoea [None]
  - Pharyngeal swelling [None]
  - Swollen tongue [None]
  - Headache [None]
  - Injection site haemorrhage [None]

NARRATIVE: CASE EVENT DATE: 20190308
